FAERS Safety Report 5886777-7 (Version None)
Quarter: 2008Q3

REPORT INFORMATION
  Report Type: 
  Country: None (occurrence: None)
  Receive Date: 20080917
  Receipt Date: 20080904
  Transmission Date: 20090109
  Serious: No
  Sender: FDA-Public Use
  Company Number: US-JNJFOC-20080901705

PATIENT
  Age: 20 Year
  Sex: Female
  Weight: 54.43 kg

DRUGS (3)
  1. INVEGA [Suspect]
     Indication: BIPOLAR DISORDER
     Route: 048
  2. WELLBUTRIN [Concomitant]
     Route: 048
  3. SYNTHROID [Concomitant]

REACTIONS (1)
  - HYPERPROLACTINAEMIA [None]
